FAERS Safety Report 6744812-8 (Version None)
Quarter: 2010Q2

REPORT INFORMATION
  Report Type: 
  Country: None (occurrence: None)
  Receive Date: 20100527
  Receipt Date: 20100223
  Transmission Date: 20101027
  Serious: No
  Sender: FDA-Public Use
  Company Number: US-BRISTOL-MYERS SQUIBB COMPANY-14992721

PATIENT
  Age: 62 Year
  Sex: Female

DRUGS (5)
  1. ONGLYZA [Suspect]
  2. METFORMIN HCL [Suspect]
  3. GLIPIZIDE [Suspect]
  4. SIMVASTATIN [Concomitant]
  5. ASPIRIN [Concomitant]

REACTIONS (1)
  - VISION BLURRED [None]
